FAERS Safety Report 15474309 (Version 1)
Quarter: 2018Q4

REPORT INFORMATION
  Report Type: Spontaneous
  Country: US (occurrence: US)
  Receive Date: 20181008
  Receipt Date: 20181008
  Transmission Date: 20190205
  Serious: Yes (Hospitalization)
  Sender: FDA-Public Use
  Company Number: US-JNJFOC-20181006697

PATIENT
  Age: 74 Year
  Sex: Male

DRUGS (6)
  1. ALEVE [Concomitant]
     Active Substance: NAPROXEN SODIUM
  2. IMBRUVICA [Suspect]
     Active Substance: IBRUTINIB
     Indication: WALDENSTROM^S MACROGLOBULINAEMIA
     Route: 065
     Dates: start: 20180612
  3. FISH OIL [Concomitant]
     Active Substance: FISH OIL
  4. MELATONIN [Concomitant]
     Active Substance: MELATONIN
  5. TYLENOL [Concomitant]
     Active Substance: ACETAMINOPHEN
  6. LUTEIN [Concomitant]
     Active Substance: LUTEIN

REACTIONS (2)
  - Weight decreased [Recovered/Resolved]
  - Pneumonia fungal [Recovered/Resolved]

NARRATIVE: CASE EVENT DATE: 201809
